FAERS Safety Report 10579119 (Version 1)
Quarter: 2014Q4

REPORT INFORMATION
  Report Type: Spontaneous
  Country: FR (occurrence: FR)
  Receive Date: 20141112
  Receipt Date: 20141112
  Transmission Date: 20150529
  Serious: Yes (Hospitalization)
  Sender: FDA-Public Use
  Company Number: FR-US-EMD SERONO, INC.-7331838

PATIENT
  Age: 27 Year
  Sex: Female

DRUGS (9)
  1. PUREGON                            /01348901/ [Suspect]
     Active Substance: FOLLITROPIN
     Dates: start: 201403
  2. SYNAREL [Suspect]
     Active Substance: NAFARELIN ACETATE
     Indication: ARTIFICIAL INSEMINATION BY PARTNER
     Dates: start: 201403
  3. OVITRELLE [Suspect]
     Active Substance: CHORIOGONADOTROPIN ALFA
     Indication: ARTIFICIAL INSEMINATION BY PARTNER
     Dosage: TRIGGERING OF OVULATION WITH PUREGON
     Route: 058
     Dates: start: 20140526, end: 20140526
  4. OVITRELLE [Suspect]
     Active Substance: CHORIOGONADOTROPIN ALFA
     Indication: OVULATION DISORDER
  5. PUREGON                            /01348901/ [Suspect]
     Active Substance: FOLLITROPIN
     Indication: ARTIFICIAL INSEMINATION BY PARTNER
     Dates: start: 20130313, end: 20130408
  6. PUREGON                            /01348901/ [Suspect]
     Active Substance: FOLLITROPIN
     Route: 058
     Dates: start: 20140514, end: 20140525
  7. PROGESTAN [Suspect]
     Active Substance: PROGESTERONE
     Indication: ARTIFICIAL INSEMINATION BY PARTNER
     Route: 067
     Dates: start: 20140528, end: 20140714
  8. PUREGON                            /01348901/ [Suspect]
     Active Substance: FOLLITROPIN
     Indication: OVULATION DISORDER
     Dates: start: 20130924, end: 20131013
  9. SYNAREL [Suspect]
     Active Substance: NAFARELIN ACETATE
     Indication: OVULATION DISORDER
     Route: 045
     Dates: start: 20140514, end: 20140525

REACTIONS (1)
  - Erythema nodosum [Recovering/Resolving]

NARRATIVE: CASE EVENT DATE: 201405
